FAERS Safety Report 6992381-X (Version None)
Quarter: 2010Q3

REPORT INFORMATION
  Report Type: 
  Country: None (occurrence: None)
  Receive Date: 20100915
  Receipt Date: 20100907
  Transmission Date: 20110219
  Serious: Yes (Hospitalization, Other)
  Sender: FDA-Public Use
  Company Number: 2010MA002427

PATIENT
  Age: 35 Year
  Sex: Female

DRUGS (20)
  1. SERTRALINE HYDROCHLORIDE [Suspect]
     Indication: PRODUCT USED FOR UNKNOWN INDICATION
  2. PROPRANOLOL HCL [Suspect]
     Indication: PRODUCT USED FOR UNKNOWN INDICATION
  3. LANSOPRAZOLE [Suspect]
  4. LAMICTAL [Suspect]
     Indication: EPILEPSY
     Dosage: 400 MG; BID; PO
     Route: 048
     Dates: start: 20040101
  5. DIHYDROCODEINE COMPOUND [Suspect]
  6. ARIPIPRAZOLE [Suspect]
  7. NORETHISTERONE (NORETHISTERONE) [Suspect]
  8. DICLOFENAC [Concomitant]
  9. OMEPRAZOLE [Concomitant]
  10. LACTULOSE [Concomitant]
  11. BETAMETHASONE [Concomitant]
  12. CHLORAMPHENICOL [Concomitant]
  13. AMOXICILLIN [Concomitant]
  14. FOLIC ACID [Concomitant]
  15. TPN [Concomitant]
  16. PROCHLORPERAZINE [Concomitant]
  17. AMPICILLIN SODIUM/SULBACTAM SODIUM [Concomitant]
  18. LIDOCAINE [Concomitant]
  19. MICONAZOLE [Concomitant]
  20. CLOBAZAM [Concomitant]

REACTIONS (7)
  - BACK PAIN [None]
  - CHOLESTASIS OF PREGNANCY [None]
  - CONVULSION [None]
  - DRUG EXPOSURE DURING PREGNANCY [None]
  - LABOUR INDUCTION [None]
  - NAUSEA [None]
  - PREGNANCY [None]
